FAERS Safety Report 16419643 (Version 2)
Quarter: 2020Q3

REPORT INFORMATION
  Report Type: Spontaneous
  Country: CA (occurrence: CA)
  Receive Date: 20190612
  Receipt Date: 20200710
  Transmission Date: 20201102
  Serious: Yes (Hospitalization)
  Sender: FDA-Public Use
  Company Number: PHHY2019CA132100

PATIENT
  Age: 34 Year
  Sex: Female

DRUGS (2)
  1. POTASSIUM CHLORIDE. [Suspect]
     Active Substance: POTASSIUM CHLORIDE
     Indication: ECTOPIC PREGNANCY
     Dosage: UNK
     Route: 065
  2. METHOTREXATE. [Suspect]
     Active Substance: METHOTREXATE
     Indication: ECTOPIC PREGNANCY
     Dosage: UNK
     Route: 065

REACTIONS (9)
  - Vaginal haemorrhage [Unknown]
  - Pancytopenia [Unknown]
  - Abdominal pain [Unknown]
  - Pyrexia [Unknown]
  - Product use in unapproved indication [Unknown]
  - Myelosuppression [Unknown]
  - Hypotension [Unknown]
  - Peritonitis [Unknown]
  - Maternal exposure during pregnancy [Unknown]
